FAERS Safety Report 7795265 (Version 2)
Quarter: 2013Q4

REPORT INFORMATION
  Report Type: Spontaneous
  Country: US (occurrence: US)
  Receive Date: 20110201
  Receipt Date: 20131105
  Transmission Date: 20140711
  Serious: Yes (Death, Other)
  Sender: FDA-Public Use
  Company Number: US-MILLENNIUM PHARMACEUTICALS, INC.-2011-00333

PATIENT
  Age: 79 Year
  Sex: Male
  Weight: 59.6 kg

DRUGS (1)
  1. VELCADE [Suspect]
     Indication: PLASMA CELL MYELOMA
     Dosage: 2.4 MG, ON DAYS 1, 4, 8 AND 11
     Route: 040
     Dates: start: 20101214, end: 20101221

REACTIONS (1)
  - Myocardial infarction [Fatal]
